FAERS Safety Report 6092173-2 (Version None)
Quarter: 2009Q1

REPORT INFORMATION
  Report Type: 
  Country: None (occurrence: None)
  Receive Date: 20090223
  Receipt Date: 20090223
  Transmission Date: 20090719
  Serious: Yes (Other)
  Sender: FDA-Public Use
  Company Number: None

PATIENT
  Sex: Female
  Weight: 90.7194 kg

DRUGS (2)
  1. BUPROPION HCL [Suspect]
     Indication: ANXIETY
     Dosage: 150 XR TID PO
     Route: 048
     Dates: start: 20030905, end: 20031001
  2. BUPROPION HCL [Suspect]
     Indication: DEPRESSION
     Dosage: 150 XR TID PO
     Route: 048
     Dates: start: 20030905, end: 20031001

REACTIONS (3)
  - ANXIETY [None]
  - DEPRESSION [None]
  - THERAPEUTIC RESPONSE UNEXPECTED WITH DRUG SUBSTITUTION [None]
